FAERS Safety Report 12729220 (Version 2)
Quarter: 2016Q3

REPORT INFORMATION
  Report Type: Report from Study
  Country: TR (occurrence: TR)
  Receive Date: 20160909
  Receipt Date: 20160923
  Transmission Date: 20161109
  Serious: Yes (Life-Threatening, Other)
  Sender: FDA-Public Use
  Company Number: TR-PFIZER INC-2016419833

PATIENT
  Age: 72 Year
  Sex: Male
  Weight: 70 kg

DRUGS (25)
  1. ENOX /01708202/ [Concomitant]
     Indication: THROMBOSIS PROPHYLAXIS
     Dosage: 40 MG, 1X/DAY
     Route: 058
     Dates: start: 20160718
  2. VALTREX [Concomitant]
     Active Substance: VALACYCLOVIR HYDROCHLORIDE
     Indication: ANTIVIRAL PROPHYLAXIS
     Dosage: 1 X 0.5 , UNK
     Route: 048
     Dates: start: 20160726
  3. OSTEVIT D [Concomitant]
     Indication: HYPOCALCAEMIA
     Dosage: UNK, 1X/DAY
     Route: 048
     Dates: start: 20160726
  4. DIMENHYDRINAT [Concomitant]
     Active Substance: DIMENHYDRINATE
     Indication: ANTIEMETIC SUPPORTIVE CARE
     Dosage: 3/3 MG/ML, 3X/DAY
     Route: 042
     Dates: start: 20160715
  5. ATIVAN [Concomitant]
     Active Substance: LORAZEPAM
     Indication: SLEEP DISORDER
     Dosage: 1 MG, 1X/DAY
     Route: 048
     Dates: start: 20160725
  6. KEMOPRIM [Concomitant]
     Indication: ANTIFUNGAL PROPHYLAXIS
     Dosage: 800/160 MG, 2X/DAY
     Route: 048
     Dates: start: 20160726
  7. DOXORUBICIN HCL [Suspect]
     Active Substance: DOXORUBICIN HYDROCHLORIDE
     Indication: DIFFUSE LARGE B-CELL LYMPHOMA
     Dosage: 90.5 MG, 1 IN 21 D
     Route: 042
     Dates: start: 20160729
  8. LUMEN [Concomitant]
     Indication: CANDIDA INFECTION
     Dosage: 2/50MG/ML, 3X/DAILY
     Route: 042
     Dates: start: 20160715
  9. NOVORAPID [Concomitant]
     Active Substance: INSULIN ASPART
     Indication: DIABETES MELLITUS
     Dosage: 300 MG/ML, 3X/DAY
     Route: 058
     Dates: start: 20160719
  10. TRADOLEX [Concomitant]
     Indication: ANALGESIC THERAPY
     Dosage: 100/2 MG/ML, 3X/DAY
     Route: 042
     Dates: start: 20160725
  11. URIKOLIZ [Concomitant]
     Active Substance: ALLOPURINOL
     Indication: MANDIBULOFACIAL DYSOSTOSIS
     Dosage: 300 MG, 1X/DAY
     Route: 048
     Dates: start: 20160725
  12. EMOJECT [Concomitant]
     Indication: ANTIEMETIC SUPPORTIVE CARE
     Dosage: 120 MG, 3X/DAY
     Route: 042
     Dates: start: 20160725
  13. LENALIDOMIDE [Suspect]
     Active Substance: LENALIDOMIDE
     Indication: DIFFUSE LARGE B-CELL LYMPHOMA
     Dosage: 15 MG, DAYS 1-14 IN 21 D
     Route: 048
     Dates: start: 20160728
  14. VASTAREL [Concomitant]
     Active Substance: TRIMETAZIDINE DIHYDROCHLORIDE
     Indication: HYPERTENSION
     Dosage: 40 MG, 2X/DAY
     Route: 048
  15. LANTUS [Concomitant]
     Active Substance: INSULIN GLARGINE
     Indication: DIABETES MELLITUS
     Dosage: 100 MG/ML, 1X/DAY
     Route: 058
     Dates: start: 20160719
  16. PREDNISONE. [Suspect]
     Active Substance: PREDNISONE
     Indication: DIFFUSE LARGE B-CELL LYMPHOMA
     Dosage: 100 MG, 1-5 IN 21 D
     Route: 048
     Dates: start: 20160728
  17. STABLON [Concomitant]
     Active Substance: TIANEPTINE
     Indication: ANXIETY
     Dosage: 25 MG, 2X/DAY
     Route: 048
     Dates: start: 20160715
  18. KLOROBEN [Concomitant]
     Indication: PROPHYLAXIS
     Dosage: 600 ML, 3X/DAY
     Dates: start: 20160715
  19. FUNGOSTATIN [Concomitant]
     Indication: PROPHYLAXIS
     Dosage: 100 U/ML, 3X/DAY
     Route: 048
     Dates: start: 20160715
  20. NORODOL [Concomitant]
     Indication: DELIRIUM
     Dosage: 5/1 MG/ML, 2X5
     Route: 048
  21. TERNAVIR [Concomitant]
     Indication: ANTIVIRAL PROPHYLAXIS
     Dosage: 245 MG, 1X/DAY
     Route: 048
     Dates: start: 20160730
  22. VINCRISTINE SULFATE. [Suspect]
     Active Substance: VINCRISTINE SULFATE
     Indication: DIFFUSE LARGE B-CELL LYMPHOMA
     Dosage: 2 MG, 1 IN 21 D
     Route: 042
     Dates: start: 20160728
  23. RITUXIMAB [Suspect]
     Active Substance: RITUXIMAB
     Indication: DIFFUSE LARGE B-CELL LYMPHOMA
     Dosage: 679 MG, 1 ?N 21 D
     Route: 042
     Dates: start: 20160728
  24. CYCLOPHOSPHAMIDE. [Suspect]
     Active Substance: CYCLOPHOSPHAMIDE
     Indication: DIFFUSE LARGE B-CELL LYMPHOMA
     Dosage: 1358 MG, 1 IN 21 D
     Route: 042
     Dates: start: 20160728
  25. ESOMEPRAZOLE MAGNESIUM. [Concomitant]
     Active Substance: ESOMEPRAZOLE MAGNESIUM
     Indication: PROPHYLAXIS AGAINST GASTROINTESTINAL ULCER
     Dosage: 80 MG, 2X/DAY
     Route: 042
     Dates: start: 20160715

REACTIONS (4)
  - Tumour lysis syndrome [Not Recovered/Not Resolved]
  - Urinary retention [Not Recovered/Not Resolved]
  - Sepsis [Not Recovered/Not Resolved]
  - Acute kidney injury [Not Recovered/Not Resolved]

NARRATIVE: CASE EVENT DATE: 20160731
